FAERS Safety Report 7954192-8 (Version None)
Quarter: 2011Q4

REPORT INFORMATION
  Report Type: 
  Country: None (occurrence: None)
  Receive Date: 20111202
  Receipt Date: 20111128
  Transmission Date: 20120403
  Serious: Yes (Death)
  Sender: FDA-Public Use
  Company Number: IT-CUBIST-2011S1000843

PATIENT
  Age: 76 None
  Sex: Male

DRUGS (4)
  1. CUBICIN [Suspect]
     Indication: ENDOCARDITIS
  2. VANCOMYCIN [Concomitant]
     Indication: PRODUCT USED FOR UNKNOWN INDICATION
     Dosage: DOSE UNIT:U UNKNOWN
     Route: 065
  3. CUBICIN [Suspect]
     Indication: DEVICE RELATED INFECTION
  4. CEFTRIAXONE [Concomitant]
     Indication: PRODUCT USED FOR UNKNOWN INDICATION
     Dosage: DOSE UNIT:U UNKNOWN
     Route: 065

REACTIONS (1)
  - DISEASE PROGRESSION [None]
